FAERS Safety Report 4416526-0 (Version None)
Quarter: 2004Q3

REPORT INFORMATION
  Report Type: 
  Country: None (occurrence: None)
  Receive Date: 20040802
  Receipt Date: 20040506
  Transmission Date: 20050211
  Serious: Yes (Hospitalization)
  Sender: FDA-Public Use
  Company Number: D01200401605

PATIENT
  Age: 57 Year
  Sex: Male
  Weight: 101.5 kg

DRUGS (3)
  1. CISPLATIN [Suspect]
     Indication: CARCINOMA
     Dosage: 100 MG/M2 OTHER - INTRAVENOUS NOS
     Route: 042
     Dates: start: 20040419, end: 20040419
  2. ALLOPURINOL [Concomitant]
  3. ALUMINIUM HYDROCHLORIDE/MAGNESIUM HYDROCHLORIDE/OXETACAINE [Concomitant]

REACTIONS (17)
  - ANOREXIA [None]
  - ANTIDIURETIC HORMONE ABNORMALITY [None]
  - ASTHENIA [None]
  - CARDIOVASCULAR DISORDER [None]
  - COUGH [None]
  - DISTURBANCE IN ATTENTION [None]
  - DRUG TOXICITY [None]
  - GENERAL PHYSICAL HEALTH DETERIORATION [None]
  - HYPERHIDROSIS [None]
  - MARKEDLY REDUCED DIETARY INTAKE [None]
  - NAUSEA [None]
  - PYREXIA [None]
  - THIRST [None]
  - TUMOUR LYSIS SYNDROME [None]
  - URATE NEPHROPATHY [None]
  - VOMITING [None]
  - WHITE BLOOD CELL COUNT INCREASED [None]
